FAERS Safety Report 18852742 (Version 1)
Quarter: 2021Q1

REPORT INFORMATION
  Report Type: Spontaneous
  Country: US (occurrence: US)
  Receive Date: 20210205
  Receipt Date: 20210205
  Transmission Date: 20210420
  Serious: Yes (Other)
  Sender: FDA-Public Use
  Company Number: US-SA-2021SA031518

PATIENT

DRUGS (1)
  1. ZANTAC [Suspect]
     Active Substance: RANITIDINE HYDROCHLORIDE
     Dates: start: 201402, end: 202001

REACTIONS (3)
  - Gastrointestinal carcinoma [Unknown]
  - Metastatic neoplasm [Unknown]
  - Renal cancer [Unknown]
